FAERS Safety Report 21137078 (Version 3)
Quarter: 2022Q3

REPORT INFORMATION
  Report Type: Spontaneous
  Country: AR (occurrence: AR)
  Receive Date: 20220727
  Receipt Date: 20220928
  Transmission Date: 20221026
  Serious: Yes (Other)
  Sender: FDA-Public Use
  Company Number: AR-PFIZER INC-PV202200029843

PATIENT
  Age: 80 Year
  Sex: Female

DRUGS (1)
  1. SUTENT [Suspect]
     Active Substance: SUNITINIB MALATE
     Indication: Renal cancer
     Dosage: 37.5 MG, CYCLIC (DAILY, 4X2 SCHEME)
     Dates: start: 20210603

REACTIONS (1)
  - Arthropathy [Not Recovered/Not Resolved]
